FAERS Safety Report 10417616 (Version 1)
Quarter: 2014Q2

REPORT INFORMATION
  Report Type: Spontaneous
  Country: US (occurrence: None)
  Receive Date: 20140609
  Receipt Date: 20140609
  Transmission Date: 20141212
  Serious: No
  Sender: FDA-Public Use
  Company Number: 2014TUS000621

PATIENT
  Age: 35 Year
  Sex: Female

DRUGS (4)
  1. BRINTELLIX [Suspect]
     Indication: MAJOR DEPRESSION
     Route: 048
     Dates: start: 20140126, end: 20140127
  2. DIOVAN [Concomitant]
  3. THYROID [Concomitant]
  4. AMBIEN CR [Concomitant]

REACTIONS (2)
  - Fatigue [None]
  - Dizziness [None]
